FAERS Safety Report 8322637-X (Version None)
Quarter: 2012Q2

REPORT INFORMATION
  Report Type: 
  Country: None (occurrence: None)
  Receive Date: 20120430
  Receipt Date: 20120426
  Transmission Date: 20120825
  Serious: Yes (Disabling)
  Sender: FDA-Public Use
  Company Number: US-MERCK-1203USA03339

PATIENT
  Age: 72 Year
  Sex: Female

DRUGS (15)
  1. FOSAMAX [Suspect]
     Route: 065
  2. EVENING PRIMROSE OIL [Concomitant]
     Route: 065
  3. ASPIRIN [Concomitant]
     Route: 065
  4. VITAMINS (UNSPECIFIED) [Concomitant]
     Route: 065
  5. FOSAMAX [Suspect]
     Indication: OSTEOPOROSIS
     Route: 048
     Dates: start: 19990301, end: 20010101
  6. FOSAMAX [Suspect]
     Route: 048
     Dates: start: 20010101, end: 20110131
  7. VITAMIN D (UNSPECIFIED) [Concomitant]
     Route: 065
  8. FOSAMAX [Suspect]
     Route: 065
  9. HORMONES (UNSPECIFIED) [Concomitant]
     Route: 065
     Dates: start: 19980301, end: 20070601
  10. [THERAPY UNSPECIFIED] [Concomitant]
     Indication: BLOOD CHOLESTEROL INCREASED
     Route: 065
  11. [THERAPY UNSPECIFIED] [Concomitant]
     Indication: HYPERTENSION
     Route: 065
  12. OMEGA-3 MARINE TRIGLYCERIDES [Concomitant]
     Route: 065
  13. CALCIUM (UNSPECIFIED) AND VITAMIN D (UNSPECIFIED) [Concomitant]
     Route: 065
  14. FOSAMAX [Suspect]
     Indication: OSTEOPENIA
     Route: 048
     Dates: start: 19990301, end: 20010101
  15. FOSAMAX [Suspect]
     Route: 048
     Dates: start: 20010101, end: 20110131

REACTIONS (6)
  - BLOOD CHOLESTEROL INCREASED [None]
  - FEMUR FRACTURE [None]
  - HYPERTENSION [None]
  - STRESS FRACTURE [None]
  - LOW TURNOVER OSTEOPATHY [None]
  - OSTEOPOROSIS [None]
